FAERS Safety Report 21252983 (Version 2)
Quarter: 2022Q3

REPORT INFORMATION
  Report Type: Spontaneous
  Country: FI (occurrence: FI)
  Receive Date: 20220825
  Receipt Date: 20220902
  Transmission Date: 20221027
  Serious: Yes (Hospitalization, Other)
  Sender: FDA-Public Use
  Company Number: None

PATIENT
  Age: 56 Year
  Sex: Female

DRUGS (7)
  1. INFLIXIMAB [Suspect]
     Active Substance: INFLIXIMAB
     Indication: Peripheral spondyloarthritis
     Dosage: 300 MG
     Route: 042
     Dates: start: 20210630, end: 20210913
  2. INFLIXIMAB [Suspect]
     Active Substance: INFLIXIMAB
     Dosage: 300 MG
     Route: 042
     Dates: start: 20210630, end: 20210913
  3. INFLIXIMAB [Suspect]
     Active Substance: INFLIXIMAB
     Dosage: 300 MG
     Route: 042
     Dates: start: 20210630, end: 20210913
  4. CARDACE [RAMIPRIL] [Concomitant]
     Indication: Hypertension
     Dosage: 5 MG, DAILY
     Route: 048
  5. EMCONCOR COMP [Concomitant]
     Indication: Hypertension
     Dosage: 1 DF, DAILY
     Route: 048
  6. METHOTREXATE [Concomitant]
     Active Substance: METHOTREXATE
     Dosage: 15 MG, WEEKLY
     Route: 058
     Dates: start: 20200303
  7. FOLIC ACID [Concomitant]
     Active Substance: FOLIC ACID
     Dosage: 5 MG, WEEKLY
     Route: 048
     Dates: start: 20200330

REACTIONS (2)
  - Antinuclear antibody increased [Recovering/Resolving]
  - Chronic inflammatory demyelinating polyradiculoneuropathy [Recovering/Resolving]

NARRATIVE: CASE EVENT DATE: 20211101
